FAERS Safety Report 15260688 (Version 1)
Quarter: 2018Q3

REPORT INFORMATION
  Report Type: Spontaneous
  Country: CA (occurrence: CA)
  Receive Date: 20180809
  Receipt Date: 20180809
  Transmission Date: 20181010
  Serious: Yes (Hospitalization, Disabling)
  Sender: FDA-Public Use
  Company Number: PHHY2018CA064386

PATIENT
  Age: 57 Year
  Sex: Male
  Weight: 94 kg

DRUGS (2)
  1. EXJADE [Suspect]
     Active Substance: DEFERASIROX
     Indication: IRON OVERLOAD
     Dosage: 1500 MG, UNK
     Route: 048
  2. EXJADE [Suspect]
     Active Substance: DEFERASIROX
     Indication: CHRONIC MYELOID LEUKAEMIA

REACTIONS (3)
  - Hemiplegia [Unknown]
  - Cerebrovascular accident [Unknown]
  - Aphasia [Unknown]
